FAERS Safety Report 21902046 (Version 2)
Quarter: 2023Q1

REPORT INFORMATION
  Report Type: Spontaneous
  Country: US (occurrence: US)
  Receive Date: 20230124
  Receipt Date: 20230203
  Transmission Date: 20230417
  Serious: Yes (Death, Hospitalization, Other)
  Sender: FDA-Public Use
  Company Number: US-GLENMARK PHARMACEUTICALS-2023GMK078105

PATIENT
  Age: 54 Year
  Sex: Female

DRUGS (1)
  1. METFORMIN HYDROCHLORIDE [Suspect]
     Active Substance: METFORMIN HYDROCHLORIDE
     Indication: Type 2 diabetes mellitus
     Dosage: 25.5 GRAM, SINGLE
     Route: 048

REACTIONS (6)
  - Completed suicide [Fatal]
  - Overdose [Fatal]
  - Encephalopathy [Unknown]
  - Cardiac arrest [Unknown]
  - Blood glucose decreased [Recovering/Resolving]
  - Metabolic acidosis [Recovering/Resolving]
